FAERS Safety Report 5162044-4 (Version None)
Quarter: 2006Q4

REPORT INFORMATION
  Report Type: 
  Country: None (occurrence: None)
  Receive Date: 20061121
  Receipt Date: 20061115
  Transmission Date: 20070319
  Serious: Yes (Hospitalization)
  Sender: FDA-Public Use
  Company Number: 028-C5013-06080827

PATIENT
  Age: 61 Year
  Sex: Male
  Weight: 92.2 kg

DRUGS (9)
  1. CC-5013 (LENALIDOMIDE) (CAPSULES) [Suspect]
     Indication: MULTIPLE MYELOMA
     Dosage: SEE IMAGE
     Route: 048
     Dates: start: 20060425, end: 20060815
  2. CC-5013 (LENALIDOMIDE) (CAPSULES) [Suspect]
     Indication: MULTIPLE MYELOMA
     Dosage: SEE IMAGE
     Route: 048
     Dates: start: 20060919
  3. DEXAMETHASONE TAB [Suspect]
     Indication: MULTIPLE MYELOMA
     Dosage: 40 MG, DAYS 1-4, 9-12, 17-20 Q 28 D CYCLE, ORAL
     Route: 048
     Dates: start: 20060425, end: 20060815
  4. ASPIRIN [Concomitant]
  5. ALTACE [Concomitant]
  6. NORVASC [Concomitant]
  7. AVAPRO [Concomitant]
  8. FUROSEMIDE [Concomitant]
  9. BLOOD TRANSFUSION [Concomitant]

REACTIONS (2)
  - HYPERGLYCAEMIA [None]
  - PARTIAL SEIZURES [None]
